FAERS Safety Report 9205425 (Version 4)
Quarter: 2013Q2

REPORT INFORMATION
  Report Type: Spontaneous
  Country: GB (occurrence: GB)
  Receive Date: 20130403
  Receipt Date: 20130628
  Transmission Date: 20140414
  Serious: Yes (Hospitalization)
  Sender: FDA-Public Use
  Company Number: GB-009507513-1304GBR000441

PATIENT
  Age: 37 Year
  Sex: Female

DRUGS (7)
  1. SYCREST [Suspect]
     Indication: BIPOLAR DISORDER
     Dosage: 10 MG, BID
     Route: 060
     Dates: start: 20130304, end: 20130304
  2. SYCREST [Suspect]
     Dosage: 5 MG, BID
     Route: 060
  3. SYCREST [Suspect]
     Dosage: 140 MG, ONCE
     Route: 048
     Dates: start: 201304, end: 201304
  4. LEVOTHYROXINE SODIUM [Suspect]
     Indication: HYPOTHYROIDISM
     Dosage: UNK
     Route: 048
  5. LEVOTHYROXINE SODIUM [Suspect]
     Dosage: 20X 100 MICROGRAM, ONCE
     Route: 048
     Dates: start: 20130304, end: 20130304
  6. PROPRANOLOL HYDROCHLORIDE [Concomitant]
     Indication: ANXIETY
     Dosage: UNK
     Dates: end: 20130304
  7. LEVOTHYROXINE SODIUM [Concomitant]

REACTIONS (4)
  - Hypoxia [Unknown]
  - Bradycardia [Unknown]
  - Sedation [Unknown]
  - Overdose [Unknown]
